FAERS Safety Report 6110220-6 (Version None)
Quarter: 2009Q1

REPORT INFORMATION
  Report Type: 
  Country: None (occurrence: None)
  Receive Date: 20090310
  Receipt Date: 20090226
  Transmission Date: 20090719
  Serious: Yes (Hospitalization, Other)
  Sender: FDA-Public Use
  Company Number: PHHY2009IT06130

PATIENT
  Sex: Male

DRUGS (2)
  1. LOPRESOR [Suspect]
     Indication: ANGINA UNSTABLE
     Dosage: 1 DF, QD
     Route: 048
     Dates: start: 20081218, end: 20081225
  2. IOMEPROL [Suspect]
     Indication: ANGINA UNSTABLE
     Dosage: 50 ML, ONCE/SINGLE
     Route: 042
     Dates: start: 20081218, end: 20081218

REACTIONS (5)
  - BLOOD POTASSIUM INCREASED [None]
  - HYPOTENSION [None]
  - PYREXIA [None]
  - RASH PRURITIC [None]
  - WHITE BLOOD CELL COUNT INCREASED [None]
